FAERS Safety Report 7829394-1 (Version None)
Quarter: 2011Q4

REPORT INFORMATION
  Report Type: 
  Country: None (occurrence: None)
  Receive Date: 20111020
  Receipt Date: 20111018
  Transmission Date: 20120403
  Serious: Yes (Death, Hospitalization)
  Sender: FDA-Public Use
  Company Number: SE-SANOFI-AVENTIS-2011SA068492

PATIENT
  Age: 66 Year
  Sex: Male

DRUGS (19)
  1. OMEPRAZOLE [Concomitant]
     Route: 065
  2. NITROLINGUAL [Concomitant]
     Route: 065
  3. SODIUM PICOSULFATE [Concomitant]
     Route: 065
  4. CALCIUM CARBONATE [Concomitant]
     Route: 065
  5. KAJOS [Concomitant]
     Route: 065
  6. MINDIAB [Concomitant]
     Route: 065
  7. MORPHINE [Concomitant]
     Route: 065
  8. ZOLPIDEM TARTRATE [Concomitant]
     Route: 065
  9. OXAZEPAM [Concomitant]
     Route: 065
  10. LACTULOSE [Concomitant]
     Route: 065
  11. PRIMPERAN TAB [Concomitant]
     Route: 065
  12. TAVEGYL /AUS/ [Concomitant]
     Route: 065
  13. PREDNISOLONE [Concomitant]
     Route: 065
  14. FLUCONAZOLE [Concomitant]
     Route: 065
  15. METOPROLOL SUCCINATE [Concomitant]
     Route: 065
  16. XATRAL OD [Concomitant]
     Route: 065
  17. TAXOTERE [Suspect]
     Indication: PROSTATE CANCER
     Dosage: 60 MG/WEEK.
     Route: 042
     Dates: start: 20110617, end: 20110728
  18. MORPHINE SULFATE [Concomitant]
     Route: 065
  19. NOVOMIX [Concomitant]
     Route: 065

REACTIONS (8)
  - NAUSEA [None]
  - GENERAL PHYSICAL HEALTH DETERIORATION [None]
  - ABDOMINAL PAIN [None]
  - PAIN IN EXTREMITY [None]
  - VOMITING [None]
  - TRANSAMINASES INCREASED [None]
  - DIARRHOEA [None]
  - ORAL DISORDER [None]
